FAERS Safety Report 12844168 (Version 1)
Quarter: 2016Q4

REPORT INFORMATION
  Report Type: Spontaneous
  Country: US (occurrence: US)
  Receive Date: 20161013
  Receipt Date: 20161013
  Transmission Date: 20170207
  Serious: No
  Sender: FDA-Public Use
  Company Number: US-ROCHE-1656950

PATIENT
  Sex: Female

DRUGS (7)
  1. ZELBORAF [Suspect]
     Active Substance: VEMURAFENIB
     Indication: HISTIOCYTOSIS
     Dosage: ONE IN THE MORNING, ONE IN THE EVENING
     Route: 065
     Dates: start: 2015
  2. LOSARTAN. [Concomitant]
     Active Substance: LOSARTAN
  3. LIVALO [Concomitant]
     Active Substance: PITAVASTATIN CALCIUM
  4. TRAMADOL. [Concomitant]
     Active Substance: TRAMADOL
     Indication: MUSCULOSKELETAL PAIN
     Route: 065
  5. ZELBORAF [Suspect]
     Active Substance: VEMURAFENIB
     Indication: ERDHEIM-CHESTER DISEASE
     Dosage: 500MG IN THE MORNING, 500MG IN THE EVENING
     Route: 065
     Dates: start: 201409
  6. INSULIN [Concomitant]
     Active Substance: INSULIN NOS
  7. KINERET [Concomitant]
     Active Substance: ANAKINRA

REACTIONS (18)
  - Dizziness [Not Recovered/Not Resolved]
  - Bone pain [Not Recovered/Not Resolved]
  - Arthralgia [Not Recovered/Not Resolved]
  - Weight increased [Not Recovered/Not Resolved]
  - Myalgia [Not Recovered/Not Resolved]
  - Generalised oedema [Not Recovered/Not Resolved]
  - Photosensitivity reaction [Not Recovered/Not Resolved]
  - Musculoskeletal pain [Unknown]
  - Plantar fasciitis [Not Recovered/Not Resolved]
  - Swelling [Not Recovered/Not Resolved]
  - Pain in extremity [Unknown]
  - Hypoacusis [Unknown]
  - Sciatica [Unknown]
  - Neuropathy peripheral [Unknown]
  - Skin exfoliation [Not Recovered/Not Resolved]
  - Rash [Not Recovered/Not Resolved]
  - Pruritus [Not Recovered/Not Resolved]
  - Fatigue [Not Recovered/Not Resolved]
